FAERS Safety Report 11943230 (Version 1)
Quarter: 2016Q1

REPORT INFORMATION
  Report Type: Spontaneous
  Country: US (occurrence: US)
  Receive Date: 20160125
  Receipt Date: 20160125
  Transmission Date: 20160526
  Serious: No
  Sender: FDA-Public Use
  Company Number: US-UNITED THERAPEUTICS-UNT-2015-011371

PATIENT
  Sex: Female
  Weight: 72.56 kg

DRUGS (2)
  1. COUMADIN [Concomitant]
     Active Substance: WARFARIN SODIUM
     Indication: PRODUCT USED FOR UNKNOWN INDICATION
  2. REMODULIN [Suspect]
     Active Substance: TREPROSTINIL
     Indication: PULMONARY ARTERIAL HYPERTENSION
     Dosage: 0.080 ?G/KG/MIN, CONTINUING
     Route: 041
     Dates: start: 20101109

REACTIONS (4)
  - Rash [Unknown]
  - Injection site erythema [Unknown]
  - Device issue [Unknown]
  - Injection site irritation [Unknown]

NARRATIVE: CASE EVENT DATE: 2015
